FAERS Safety Report 6739321-6 (Version None)
Quarter: 2010Q2

REPORT INFORMATION
  Report Type: 
  Country: None (occurrence: None)
  Receive Date: 20100521
  Receipt Date: 20100510
  Transmission Date: 20101027
  Serious: Yes (Hospitalization)
  Sender: FDA-Public Use
  Company Number: 589792

PATIENT
  Age: 50 Year
  Sex: Female

DRUGS (8)
  1. DOBUTAMINE HYDROCHLORIDE [Suspect]
     Indication: STRESS ECHOCARDIOGRAM
     Dosage: 10 MCG/KG/MIN AND INCREASED IN A STEPWISE FASHION TO A PEAK DOSE OF 30 MCG/KG/MIN INTRAVENOUS DRIP
     Route: 041
  2. BUSPIRONE HCL [Concomitant]
  3. BUPROPION HCL [Concomitant]
  4. CONJUGATED ESTROGENS [Concomitant]
  5. RABEPRAZOLE SODIUM [Concomitant]
  6. TOPIRAMATE [Concomitant]
  7. DIVALPROEX SODIUM [Concomitant]
  8. ATROPINE SULFATE [Concomitant]

REACTIONS (1)
  - STRESS CARDIOMYOPATHY [None]
